FAERS Safety Report 5551751-7 (Version None)
Quarter: 2007Q4

REPORT INFORMATION
  Report Type: 
  Country: None (occurrence: None)
  Receive Date: 20071212
  Receipt Date: 20071203
  Transmission Date: 20080405
  Serious: Yes (Hospitalization, Other)
  Sender: FDA-Public Use
  Company Number: US-ELI_LILLY_AND_COMPANY-US200709001564

PATIENT
  Sex: Female

DRUGS (22)
  1. CYMBALTA [Suspect]
     Dosage: UNK, UNKNOWN
  2. HUMATROPE [Suspect]
     Indication: GROWTH HORMONE DEFICIENCY
     Dosage: UNK, UNKNOWN
     Dates: start: 20061001
  3. HUMATROPE [Suspect]
     Dosage: UNK, UNKNOWN
     Dates: start: 20061001
  4. BYETTA [Concomitant]
     Dosage: 5 MG, 2/D
  5. COREG [Concomitant]
     Dosage: 6.25 MG, 2/D
  6. LASIX [Concomitant]
     Dosage: 40 MG, 2/D
  7. CARDURA [Concomitant]
     Dosage: UNK, UNKNOWN
  8. SYNTHROID [Concomitant]
     Dosage: 75 UG, DAILY (1/D)
  9. LORTAB [Concomitant]
     Dosage: 7.5 UNK, 2/D
  10. ZETIA [Concomitant]
     Dosage: UNK, UNKNOWN
  11. LACTULOSE [Concomitant]
     Dosage: UNK, UNKNOWN
  12. NORVASC [Concomitant]
     Dosage: UNK, UNKNOWN
  13. VIOXX [Concomitant]
     Dosage: UNK, UNKNOWN
  14. LYRICA [Concomitant]
     Dosage: 75 MG, 2/D
  15. HYDROCORTISONE [Concomitant]
     Dosage: 20 MG, 2/D
  16. MACRODANTIN [Concomitant]
     Dosage: 50 MG, EACH EVENING
  17. POTASSIUM CHLORIDE [Concomitant]
     Dosage: 20 MEQ, 2/D
  18. PROTONIX [Concomitant]
     Dosage: 40 MG, DAILY (1/D)
  19. LEXAPRO [Concomitant]
     Dosage: 40 MG, DAILY (1/D)
  20. FENTANYL [Concomitant]
     Dosage: 150 MG, OTHER
  21. SINGULAIR [Concomitant]
     Dosage: 10 MG, DAILY (1/D)
  22. VITAMIN B-12 [Concomitant]
     Dosage: 1 D/F, MONTHLY (1/M)

REACTIONS (11)
  - ARTERIOSCLEROSIS [None]
  - BACK PAIN [None]
  - CEREBROVASCULAR ACCIDENT [None]
  - DEHYDRATION [None]
  - FALL [None]
  - FIBULA FRACTURE [None]
  - HEPATIC CIRRHOSIS [None]
  - HEPATIC ENCEPHALOPATHY [None]
  - HEPATIC STEATOSIS [None]
  - VIRAL INFECTION [None]
  - VISUAL ACUITY REDUCED [None]
